FAERS Safety Report 6149652-9 (Version None)
Quarter: 2009Q2

REPORT INFORMATION
  Report Type: 
  Country: None (occurrence: None)
  Receive Date: 20090409
  Receipt Date: 20090403
  Transmission Date: 20091009
  Serious: Yes (Other)
  Sender: FDA-Public Use
  Company Number: SE-AVENTIS-200911772EU

PATIENT
  Age: 101 Year
  Sex: Female

DRUGS (1)
  1. LASIX LONG [Suspect]
     Dosage: DOSE: UNK
     Route: 048

REACTIONS (1)
  - HALLUCINATION [None]
